FAERS Safety Report 6990076-X (Version None)
Quarter: 2010Q3

REPORT INFORMATION
  Report Type: 
  Country: None (occurrence: None)
  Receive Date: 20100916
  Receipt Date: 20100423
  Transmission Date: 20110219
  Serious: Yes (Other)
  Sender: FDA-Public Use
  Company Number: GB-PFIZER INC-2010021838

PATIENT
  Sex: Female
  Weight: 55 kg

DRUGS (5)
  1. LYRICA [Suspect]
     Indication: NEURALGIA
     Dosage: 400 MG, 3X/DAY
     Route: 048
     Dates: start: 20091101, end: 20100201
  2. OXYCODONE HCL [Concomitant]
     Indication: PAIN
     Dosage: 15 MG, 4X/DAY
     Route: 048
  3. TRAMADOL [Concomitant]
     Indication: PAIN
     Dosage: 100 MG, 4X/DAY
     Route: 048
  4. DIAZEPAM [Concomitant]
     Indication: PAIN
     Dosage: 2 MG, 1X/DAY
  5. PARACETAMOL [Concomitant]
     Dosage: 1 G, 4X/DAY

REACTIONS (5)
  - ACCIDENTAL OVERDOSE [None]
  - FACE OEDEMA [None]
  - LOCALISED OEDEMA [None]
  - PARAESTHESIA [None]
  - WITHDRAWAL SYNDROME [None]
